FAERS Safety Report 21625450 (Version 1)
Quarter: 2022Q4

REPORT INFORMATION
  Report Type: Spontaneous
  Country: US (occurrence: US)
  Receive Date: 20221122
  Receipt Date: 20221122
  Transmission Date: 20230113
  Serious: No
  Sender: FDA-Public Use
  Company Number: US-VIIV HEALTHCARE LIMITED-US2022167291

PATIENT
  Sex: Male

DRUGS (2)
  1. RILPIVIRINE [Suspect]
     Active Substance: RILPIVIRINE
     Indication: HIV infection
     Dosage: 3 ML OF CABETEGRVIR 600MG LEFT/RIGHT BUTTOCK
     Route: 065
     Dates: start: 20221025
  2. CABOTEGRAVIR [Suspect]
     Active Substance: CABOTEGRAVIR
     Indication: HIV infection
     Dosage: 3 ML OF CABETEGRVIR 600MG LEFT/RIGHT BUTTOCK
     Route: 065
     Dates: start: 20221025

REACTIONS (1)
  - Insomnia [Unknown]
